FAERS Safety Report 21022032 (Version 2)
Quarter: 2022Q3

REPORT INFORMATION
  Report Type: Spontaneous
  Country: US (occurrence: US)
  Receive Date: 20220629
  Receipt Date: 20220707
  Transmission Date: 20221026
  Serious: No
  Sender: FDA-Public Use
  Company Number: UNT-2022-010418

PATIENT
  Age: 55 Year
  Sex: Female

DRUGS (6)
  1. TYLENOL [Suspect]
     Active Substance: ACETAMINOPHEN
     Indication: Headache
     Route: 065
     Dates: start: 2022
  2. TYVASO [Concomitant]
     Active Substance: TREPROSTINIL
     Indication: Pulmonary arterial hypertension
     Dosage: 0.6 MG/ML
     Route: 055
     Dates: start: 202204
  3. TYVASO [Concomitant]
     Active Substance: TREPROSTINIL
     Dosage: 18 UG (3 BREATHS), FOUR TIMES A DAY (QID) VIA INHALATION (IH) ROUTE
     Route: 055
     Dates: start: 20220502, end: 202205
  4. TYVASO [Concomitant]
     Active Substance: TREPROSTINIL
     Dosage: 18 UG, BID, INHALATION
     Route: 055
     Dates: start: 202205, end: 202205
  5. TYVASO [Concomitant]
     Active Substance: TREPROSTINIL
     Dosage: 54 UG (9 BREATHS), QID
     Route: 055
     Dates: start: 202205
  6. TYVASO [Concomitant]
     Active Substance: TREPROSTINIL
     Dosage: 54 UG, TID, INHALATION
     Route: 055

REACTIONS (1)
  - Drug ineffective [Unknown]

NARRATIVE: CASE EVENT DATE: 20220101
